FAERS Safety Report 8793916 (Version 2)
Quarter: 2013Q2

REPORT INFORMATION
  Report Type: Spontaneous
  Country: US (occurrence: US)
  Receive Date: 20120918
  Receipt Date: 20130427
  Transmission Date: 20140414
  Serious: Yes (Other)
  Sender: FDA-Public Use
  Company Number: US-009507513-1208USA007306

PATIENT
  Age: 49 Year
  Sex: Male

DRUGS (2)
  1. PEG-INTRON [Suspect]
     Indication: HEPATITIS C
     Dosage: UNK
     Dates: start: 20120511, end: 201304
  2. REBETOL [Suspect]
     Indication: HEPATITIS C
     Dosage: UNK
     Dates: start: 20120511, end: 201304

REACTIONS (4)
  - Throat cancer [Unknown]
  - Irritability [Unknown]
  - Pollakiuria [Unknown]
  - Rash [Unknown]
